FAERS Safety Report 4839191-7 (Version None)
Quarter: 2005Q4

REPORT INFORMATION
  Report Type: 
  Country: None (occurrence: None)
  Receive Date: 20051129
  Receipt Date: 20051121
  Transmission Date: 20060501
  Serious: Yes (Hospitalization)
  Sender: FDA-Public Use
  Company Number: US-ABBOTT-05P-163-0317727-00

PATIENT
  Sex: Female
  Weight: 59.928 kg

DRUGS (4)
  1. DEPAKOTE ER [Suspect]
     Indication: BIPOLAR DISORDER
     Route: 048
     Dates: start: 19980101
  2. PRIMIDONE [Concomitant]
     Indication: CONVULSION
     Route: 048
     Dates: start: 19980101
  3. FUROSEMIDE [Concomitant]
     Indication: FLUID RETENTION
     Route: 048
     Dates: start: 20030101
  4. FUROSEMIDE [Concomitant]
     Indication: BLOOD PRESSURE INCREASED

REACTIONS (11)
  - BURNING SENSATION [None]
  - FALL [None]
  - HEADACHE [None]
  - HIP FRACTURE [None]
  - HYPOAESTHESIA [None]
  - INJURY [None]
  - KIDNEY ENLARGEMENT [None]
  - NEPHROLITHIASIS [None]
  - PEPTIC ULCER [None]
  - PRODUCTIVE COUGH [None]
  - SINUSITIS [None]
